FAERS Safety Report 4957371-7 (Version None)
Quarter: 2006Q1

REPORT INFORMATION
  Report Type: 
  Country: None (occurrence: None)
  Receive Date: 20060324
  Receipt Date: 20060314
  Transmission Date: 20060701
  Serious: Yes (Death, Hospitalization)
  Sender: FDA-Public Use
  Company Number: HQWYE808015FEB06

PATIENT
  Age: 57 Year
  Sex: Male
  Weight: 92.9 kg

DRUGS (6)
  1. MYLOTARG [Suspect]
     Indication: MYELODYSPLASTIC SYNDROME
     Dosage: 6 MG 1X PER 1 DAY; INTRAVENOUS
     Route: 042
     Dates: start: 20050206, end: 20060206
  2. ARSENIC TRIOXIDE [Suspect]
     Indication: MYELODYSPLASTIC SYNDROME
     Dosage: 22 MG 1X PER 1 DAY; INTRAVENOUS
     Route: 042
     Dates: start: 20060130, end: 20060130
  3. ARSENIC TRIOXIDE [Suspect]
     Indication: MYELODYSPLASTIC SYNDROME
     Dosage: 22 MG 1X PER 1 DAY; INTRAVENOUS
     Route: 042
     Dates: start: 20060213, end: 20060213
  4. POTASSIUM CHLORIDE [Concomitant]
  5. PREVACID [Concomitant]
  6. COMPAZINE [Concomitant]

REACTIONS (16)
  - ABDOMINAL DISTENSION [None]
  - ABDOMINAL PAIN [None]
  - BLOOD BILIRUBIN INCREASED [None]
  - BLOOD SODIUM DECREASED [None]
  - CHROMATURIA [None]
  - CONDITION AGGRAVATED [None]
  - DISCOMFORT [None]
  - DISEASE PROGRESSION [None]
  - EPISTAXIS [None]
  - HAEMOGLOBIN DECREASED [None]
  - NAUSEA [None]
  - ORAL INTAKE REDUCED [None]
  - RESTLESSNESS [None]
  - SPLENOMEGALY [None]
  - VOMITING [None]
  - WHITE BLOOD CELL COUNT DECREASED [None]
